FAERS Safety Report 25050692 (Version 3)
Quarter: 2025Q2

REPORT INFORMATION
  Report Type: Spontaneous
  Country: US (occurrence: US)
  Receive Date: 20250307
  Receipt Date: 20250418
  Transmission Date: 20250717
  Serious: Yes (Other)
  Sender: ABBVIE
  Company Number: US-ABBVIE-6165915

PATIENT
  Sex: Female

DRUGS (1)
  1. REFRESH CELLUVISC [Suspect]
     Active Substance: CARBOXYMETHYLCELLULOSE SODIUM
     Indication: Dry eye
     Route: 047

REACTIONS (8)
  - Blindness unilateral [Unknown]
  - Rheumatoid arthritis [Unknown]
  - Product packaging quantity issue [Not Recovered/Not Resolved]
  - Visual impairment [Unknown]
  - Spinal operation [Unknown]
  - Osteoarthritis [Unknown]
  - Hip fracture [Unknown]
  - Fibromyalgia [Unknown]
